FAERS Safety Report 9678050 (Version 1)
Quarter: 2013Q4

REPORT INFORMATION
  Report Type: Spontaneous
  Country: US (occurrence: None)
  Receive Date: 20131107
  Receipt Date: 20131107
  Transmission Date: 20140711
  Serious: Yes (Other)
  Sender: FDA-Public Use
  Company Number: None

PATIENT
  Age: 64 Year
  Sex: Female
  Weight: 56.7 kg

DRUGS (4)
  1. SERTRALINE [Suspect]
     Indication: DEPRESSION
  2. SERTRALINE [Suspect]
     Indication: ANXIETY
  3. SERTRALINE [Suspect]
     Indication: DEPRESSION
  4. SERTRALINE [Suspect]
     Indication: ANXIETY

REACTIONS (2)
  - Product substitution issue [None]
  - Drug ineffective [None]
